FAERS Safety Report 14394638 (Version 1)
Quarter: 2018Q1

REPORT INFORMATION
  Report Type: Spontaneous
  Country: FR (occurrence: FR)
  Receive Date: 20180116
  Receipt Date: 20180116
  Transmission Date: 20180509
  Serious: Yes (Other)
  Sender: FDA-Public Use
  Company Number: FR-PFIZER INC-2018012953

PATIENT
  Age: 58 Year
  Sex: Male
  Weight: 69 kg

DRUGS (12)
  1. UVEDOSE [Concomitant]
     Active Substance: CHOLECALCIFEROL
  2. SPECIAFOLDINE [Concomitant]
     Active Substance: FOLIC ACID
  3. NAPROXENE [Concomitant]
     Active Substance: NAPROXEN
  4. TRAMADOL. [Concomitant]
     Active Substance: TRAMADOL
  5. ATENOLOL. [Concomitant]
     Active Substance: ATENOLOL
  6. NOVATREX NOS [Suspect]
     Active Substance: AZITHROMYCIN OR METHOTREXATE SODIUM
     Indication: PSORIATIC ARTHROPATHY
     Dosage: 3 DF, WEEKLY
     Route: 048
     Dates: end: 20171127
  7. PANTOPRAZOLE [Concomitant]
     Active Substance: PANTOPRAZOLE
  8. REMICADE [Suspect]
     Active Substance: INFLIXIMAB
     Indication: PSORIATIC ARTHROPATHY
     Dosage: 400 MG, UNK, 85TH PERFUSION
     Route: 041
     Dates: end: 20171010
  9. CORTANCYL [Concomitant]
     Active Substance: PREDNISONE
  10. KARDEGIC [Concomitant]
     Active Substance: ASPIRIN DL-LYSINE
  11. IMOVANE [Concomitant]
     Active Substance: ZOPICLONE
  12. COTAREG [Concomitant]
     Active Substance: HYDROCHLOROTHIAZIDE\VALSARTAN
     Dosage: 160 MG/25 MG (FREQUENCY NOT SPECIFIED)

REACTIONS (1)
  - Bronchial carcinoma [Not Recovered/Not Resolved]

NARRATIVE: CASE EVENT DATE: 201710
